FAERS Safety Report 9195978 (Version 3)
Quarter: 2013Q2

REPORT INFORMATION
  Report Type: Spontaneous
  Country: FR (occurrence: FR)
  Receive Date: 20130328
  Receipt Date: 20130503
  Transmission Date: 20140414
  Serious: Yes (Other)
  Sender: FDA-Public Use
  Company Number: PHHY2013FR027202

PATIENT
  Age: 35 Year
  Sex: Male

DRUGS (5)
  1. LEPONEX [Suspect]
     Indication: SCHIZOPHRENIA
     Dosage: UNK
  2. LEPONEX [Suspect]
     Dosage: 100 MG QD
     Dates: start: 201302
  3. LEPONEX [Suspect]
     Dosage: 25 MG, QD
  4. LAMICTAL [Concomitant]
     Dates: start: 201303
  5. ZYPREXA [Concomitant]
     Dosage: UNK

REACTIONS (9)
  - Eosinophilic colitis [Unknown]
  - Abdominal pain [Unknown]
  - Nausea [Unknown]
  - Eructation [Unknown]
  - Flatulence [Unknown]
  - Gastrointestinal disorder [Recovering/Resolving]
  - Eosinophilia [Not Recovered/Not Resolved]
  - Splenomegaly [Unknown]
  - Abdominal lymphadenopathy [Unknown]
